FAERS Safety Report 4925912-1 (Version None)
Quarter: 2006Q1

REPORT INFORMATION
  Report Type: 
  Country: None (occurrence: None)
  Receive Date: 20060228
  Receipt Date: 20050413
  Transmission Date: 20060701
  Serious: Yes (Other)
  Sender: FDA-Public Use
  Company Number: US-GLAXOSMITHKLINE-A0554028A

PATIENT
  Age: 13 Year
  Sex: Male

DRUGS (6)
  1. LAMICTAL [Suspect]
     Dosage: 350MG VARIABLE DOSE
     Route: 048
     Dates: start: 20021101
  2. HEPARIN [Concomitant]
  3. DIGOXIN [Concomitant]
  4. ALDACTONE [Concomitant]
  5. LASIX [Concomitant]
  6. DILANTIN [Concomitant]

REACTIONS (1)
  - CONVULSION [None]
